FAERS Safety Report 10074606 (Version 1)
Quarter: 2014Q2

REPORT INFORMATION
  Report Type: Spontaneous
  Country: US (occurrence: US)
  Receive Date: 20140413
  Receipt Date: 20140413
  Transmission Date: 20141212
  Serious: No
  Sender: FDA-Public Use
  Company Number: US-009507513-1403USA012592

PATIENT
  Sex: 0

DRUGS (2)
  1. NUVARING [Suspect]
     Route: 067
  2. MK-0000 [Suspect]
     Indication: HORMONE THERAPY
     Dosage: LOW HORMONE PILL
     Route: 048

REACTIONS (1)
  - Depression [Unknown]
